FAERS Safety Report 11356577 (Version 1)
Quarter: 2015Q3

REPORT INFORMATION
  Report Type: Spontaneous
  Country: US (occurrence: US)
  Receive Date: 20150803
  Receipt Date: 20150803
  Transmission Date: 20151125
  Serious: Yes (Hospitalization)
  Sender: FDA-Public Use
  Company Number: US-ELI_LILLY_AND_COMPANY-US200711006993

PATIENT
  Sex: Male
  Weight: 79.37 kg

DRUGS (1)
  1. ZYPREXA [Suspect]
     Active Substance: OLANZAPINE
     Indication: DEPRESSION
     Dosage: 75 MG, UNK
     Dates: start: 1995, end: 2005

REACTIONS (6)
  - Pancreatitis [Unknown]
  - Hypertension [Unknown]
  - Prescribed overdose [Unknown]
  - Anxiety [Not Recovered/Not Resolved]
  - Diabetes mellitus [Unknown]
  - Emotional distress [Not Recovered/Not Resolved]

NARRATIVE: CASE EVENT DATE: 1995
